FAERS Safety Report 5081870-3 (Version None)
Quarter: 2006Q3

REPORT INFORMATION
  Report Type: 
  Country: None (occurrence: None)
  Receive Date: 20060811
  Receipt Date: 20060801
  Transmission Date: 20061208
  Serious: Yes (Hospitalization)
  Sender: FDA-Public Use
  Company Number: 29642

PATIENT
  Age: 57 Year
  Sex: Male

DRUGS (4)
  1. FLECAINIDE ACETATE [Suspect]
     Indication: ATRIAL FIBRILLATION
     Dosage: 150 MG
     Route: 048
     Dates: start: 20060702, end: 20060703
  2. TEMERIT (NEBIVOLOL) [Concomitant]
  3. PREVISCAN (FLUINDIONE) [Concomitant]
  4. PHYSIOTENS (MONOXIDINE) [Concomitant]

REACTIONS (5)
  - ASTHENIA [None]
  - HEPATITIS [None]
  - MALAISE [None]
  - NAUSEA [None]
  - VOMITING [None]
